FAERS Safety Report 15104190 (Version 2)
Quarter: 2018Q4

REPORT INFORMATION
  Report Type: Report from Study
  Country: US (occurrence: US)
  Receive Date: 20180703
  Receipt Date: 20181128
  Transmission Date: 20190204
  Serious: Yes (Other)
  Sender: FDA-Public Use
  Company Number: US-ALEXION PHARMACEUTICALS INC.-A201808117

PATIENT
  Sex: Female

DRUGS (2)
  1. SOLIRIS [Suspect]
     Active Substance: ECULIZUMAB
     Indication: PRODUCT USED FOR UNKNOWN INDICATION
     Dosage: UNK
     Route: 065
  2. SOLIRIS [Suspect]
     Active Substance: ECULIZUMAB
     Dosage: UNK
     Route: 065

REACTIONS (7)
  - Activated partial thromboplastin time prolonged [Unknown]
  - Skin cancer [Recovered/Resolved]
  - Fatigue [Recovered/Resolved]
  - Memory impairment [Unknown]
  - Nausea [Recovered/Resolved]
  - Balance disorder [Recovered/Resolved]
  - Deafness [Recovered/Resolved]
